FAERS Safety Report 9557544 (Version 1)
Quarter: 2013Q3

REPORT INFORMATION
  Report Type: Spontaneous
  Country: FR (occurrence: None)
  Receive Date: 20130923
  Receipt Date: 20130923
  Transmission Date: 20140515
  Serious: Yes (Life-Threatening)
  Sender: FDA-Public Use
  Company Number: 1891705

PATIENT
  Age: 72 Year
  Sex: Female

DRUGS (4)
  1. CARBOPLATIN [Suspect]
     Indication: CHEMOTHERAPY
     Dosage: UNKNOWN, UNKNOWN, INTRAVENOUS (NOT OTHERWISE SPECIFIED)
     Route: 042
     Dates: start: 20120530, end: 20120530
  2. PACLITAXEL [Suspect]
     Indication: CHEMOTHERAPY
     Dosage: INTRAVENOUS (NOT OTHERWISE SPECIFIED)?
     Route: 042
     Dates: start: 20130530, end: 20130530
  3. DEXAMETHASONE [Concomitant]
  4. SOLUMEDROL [Concomitant]

REACTIONS (7)
  - Circulatory collapse [None]
  - Cardio-respiratory arrest [None]
  - Pruritus [None]
  - Erythema [None]
  - Skin plaque [None]
  - Paraesthesia [None]
  - Anaphylactic reaction [None]
